FAERS Safety Report 21716507 (Version 3)
Quarter: 2023Q1

REPORT INFORMATION
  Report Type: Spontaneous
  Country: US (occurrence: US)
  Receive Date: 20221212
  Receipt Date: 20230228
  Transmission Date: 20230418
  Serious: Yes (Hospitalization)
  Sender: FDA-Public Use
  Company Number: US-ENZYVANT THERAPEUTICS, INC.-US2022ENZ00012

PATIENT
  Age: 4 Year
  Sex: Male
  Weight: 16.2 kg

DRUGS (2)
  1. RETHYMIC [Suspect]
     Active Substance: ALLOGENIC THYMOCYTE-DEPLETED THYMUS TISSUE-AGDC
     Indication: DiGeorge^s syndrome
     Dosage: 8196 MM2/M2 (29 SLICES)
     Dates: start: 20220607, end: 20220607
  2. CYCLOSPORINE [Concomitant]
     Active Substance: CYCLOSPORINE
     Indication: Product used for unknown indication
     Dosage: BID, VIA TUBE
     Route: 050
     Dates: start: 20220609

REACTIONS (1)
  - Respiratory tract infection viral [Recovered/Resolved]

NARRATIVE: CASE EVENT DATE: 20220829
